FAERS Safety Report 8195382-1 (Version None)
Quarter: 2012Q1

REPORT INFORMATION
  Report Type: 
  Country: None (occurrence: None)
  Receive Date: 20120308
  Receipt Date: 20120229
  Transmission Date: 20120608
  Serious: Yes (Hospitalization)
  Sender: FDA-Public Use
  Company Number: FR-GLAXOSMITHKLINE-B0784848A

PATIENT
  Sex: Male
  Weight: 13.1 kg

DRUGS (8)
  1. KABIVEN [Suspect]
     Indication: ENTERAL NUTRITION
     Route: 065
     Dates: start: 20111102
  2. STEM CELL TRANSPLANT [Concomitant]
     Route: 065
     Dates: start: 20111102
  3. CARBOPLATIN [Suspect]
     Indication: BRAIN NEOPLASM MALIGNANT
     Dosage: 289MG PER DAY
     Route: 042
     Dates: start: 20111027, end: 20111029
  4. PLITICAN [Suspect]
     Indication: VOMITING
     Route: 065
     Dates: start: 20111102
  5. ZOFRAN [Suspect]
     Indication: VOMITING
     Route: 065
     Dates: start: 20111102
  6. CEFTAZIDIME [Suspect]
     Indication: PRODUCT USED FOR UNKNOWN INDICATION
     Dosage: 430MG THREE TIMES PER DAY
     Route: 065
     Dates: start: 20111102
  7. VANCOMYCIN [Suspect]
     Indication: PRODUCT USED FOR UNKNOWN INDICATION
     Dosage: 135MG FOUR TIMES PER DAY
     Route: 065
     Dates: start: 20111102
  8. THIOTEPA [Suspect]
     Indication: BRAIN NEOPLASM MALIGNANT
     Dosage: 170MG PER DAY
     Route: 042
     Dates: start: 20111030, end: 20111101

REACTIONS (3)
  - QUADRIPARESIS [None]
  - TREMOR [None]
  - HYPOTONIA [None]
